FAERS Safety Report 6253818-7 (Version None)
Quarter: 2009Q3

REPORT INFORMATION
  Report Type: 
  Country: None (occurrence: None)
  Receive Date: 20090702
  Receipt Date: 20090622
  Transmission Date: 20100115
  Serious: Yes (Other)
  Sender: FDA-Public Use
  Company Number: GB-RANBAXY-2009RR-25256

PATIENT
  Age: 51 Year
  Sex: Female

DRUGS (5)
  1. CIPROFLOXACIN [Suspect]
  2. LYRICA [Suspect]
     Dosage: 25 MG, BID
  3. PHENYTOIN SODIUM CAP [Concomitant]
  4. KEPPRA [Concomitant]
  5. LAMOTRIGINE [Concomitant]

REACTIONS (2)
  - EPILEPSY [None]
  - POTENTIATING DRUG INTERACTION [None]
